FAERS Safety Report 9457296 (Version 3)
Quarter: 2013Q4

REPORT INFORMATION
  Report Type: Report from Study
  Country: US (occurrence: US)
  Receive Date: 20130814
  Receipt Date: 20131017
  Transmission Date: 20140711
  Serious: Yes (Death)
  Sender: FDA-Public Use
  Company Number: US-ALEXION PHARMACEUTICALS INC.-A201301879

PATIENT
  Age: 8 Year
  Sex: Female
  Weight: 30 kg

DRUGS (3)
  1. SOLIRIS [Suspect]
     Indication: HAEMOLYTIC URAEMIC SYNDROME
     Dosage: 600 MG, QW X2
     Route: 042
     Dates: start: 20130417
  2. SOLIRIS [Suspect]
     Dosage: 900 MG, Q2W
     Route: 042
     Dates: start: 20130501, end: 20130718
  3. SOLIRIS [Suspect]
     Dosage: 600 MG, AS 2ND DOSE OF REINDUCTION
     Route: 042
     Dates: start: 20130731

REACTIONS (3)
  - Adenovirus infection [Fatal]
  - Haemolytic uraemic syndrome [Unknown]
  - Condition aggravated [Unknown]
